FAERS Safety Report 10446821 (Version 3)
Quarter: 2014Q4

REPORT INFORMATION
  Report Type: Report from Study
  Country: CA (occurrence: CA)
  Receive Date: 20140911
  Receipt Date: 20141006
  Transmission Date: 20150528
  Serious: Yes (Other)
  Sender: FDA-Public Use
  Company Number: CA-JNJFOC-20140414682

PATIENT
  Age: 46 Year
  Sex: Male

DRUGS (6)
  1. COPEGUS [Suspect]
     Active Substance: RIBAVIRIN
     Indication: PRODUCT USED FOR UNKNOWN INDICATION
     Route: 065
  2. GALEXOS [Suspect]
     Active Substance: SIMEPREVIR
     Indication: CHRONIC HEPATITIS C
     Route: 048
     Dates: start: 201404
  3. MARIJUANA [Concomitant]
     Active Substance: CANNABIS SATIVA SUBSP. INDICA TOP
  4. PERCOCET [Concomitant]
     Active Substance: ACETAMINOPHEN\OXYCODONE HYDROCHLORIDE
  5. PEGASYS [Suspect]
     Active Substance: PEGINTERFERON ALFA-2A
     Indication: PRODUCT USED FOR UNKNOWN INDICATION
     Route: 065
  6. VALIUM [Concomitant]
     Active Substance: DIAZEPAM

REACTIONS (9)
  - Skin papilloma [Unknown]
  - Oropharyngeal pain [Unknown]
  - Lower extremity mass [Unknown]
  - Erythema [Unknown]
  - Pruritus [Unknown]
  - Hypersensitivity [Not Recovered/Not Resolved]
  - Pain [Unknown]
  - Haemorrhoids [Not Recovered/Not Resolved]
  - Local swelling [Unknown]

NARRATIVE: CASE EVENT DATE: 20140423
